FAERS Safety Report 21264268 (Version 1)
Quarter: 2022Q3

REPORT INFORMATION
  Report Type: Spontaneous
  Country: US (occurrence: US)
  Receive Date: 20220829
  Receipt Date: 20220829
  Transmission Date: 20221026
  Serious: Yes (Hospitalization, Other)
  Sender: FDA-Public Use
  Company Number: US-RECORDATI-2022000312

PATIENT
  Age: 2 Year
  Sex: Male
  Weight: 12.9 kg

DRUGS (5)
  1. DACTINOMYCIN [Suspect]
     Active Substance: DACTINOMYCIN
     Indication: Product used for unknown indication
     Dosage: UNK, CYCLICAL, PER DOSING TABLE OVER 1-5 MINUTES ON DAY 1 OF CYCLES 1, 3, 5, 8, 10, 12 AND 14
     Route: 042
  2. VINCRISTINE SULFATE [Suspect]
     Active Substance: VINCRISTINE SULFATE
     Indication: Product used for unknown indication
     Dosage: UNK, CYCLICAL, PER DOSING TABLE OVER 1 MINUTE OR INFUSION VIA MINIBAG
     Route: 042
  3. IRINOTECAN HYDROCHLORIDE [Suspect]
     Active Substance: IRINOTECAN HYDROCHLORIDE
     Indication: Product used for unknown indication
     Dosage: UNK, CYCLICAL, PER DOSING TABLE OVER 90 MINUTES ON DAYS 1-5 OF CYCLES 2, 4, 6, 7, 9, 11 AND 13
     Route: 042
  4. TEMSIROLIMUS [Suspect]
     Active Substance: TEMSIROLIMUS
     Indication: Product used for unknown indication
     Dosage: 15 MILLIGRAM/SQ. METER, CYCLICAL, OVER 30-60 MINUTES ON DAYS 1, 8, AND 15 OF CYCLES 1-4, 8-10, 11-14
     Route: 042
  5. CYCLOPHOSPHAMIDE [Suspect]
     Active Substance: CYCLOPHOSPHAMIDE
     Indication: Product used for unknown indication
     Dosage: UNK, CYCLICAL, PER DOSING TABLE OVER 60 MINUTES ON DAY 1 OF CYCLES 1, 3, 5, 8, 10, 12 AND 14
     Route: 042

REACTIONS (8)
  - Stomatitis [Recovered/Resolved]
  - Neuropathy peripheral [Unknown]
  - Dyspnoea [Unknown]
  - Irritability [Unknown]
  - Feeling abnormal [Unknown]
  - Hypophagia [Recovered/Resolved]
  - Pain in jaw [Recovered/Resolved]
  - Pyrexia [Unknown]

NARRATIVE: CASE EVENT DATE: 20180922
